FAERS Safety Report 11524651 (Version 1)
Quarter: 2015Q3

REPORT INFORMATION
  Report Type: Report from Study
  Country: JP (occurrence: JP)
  Receive Date: 20150918
  Receipt Date: 20150918
  Transmission Date: 20151125
  Serious: Yes (Hospitalization)
  Sender: FDA-Public Use
  Company Number: JP-AMGEN-JPNCT2013090330

PATIENT
  Age: 45 Year
  Sex: Female
  Weight: 42 kg

DRUGS (18)
  1. BEVACIZUMAB [Concomitant]
     Active Substance: BEVACIZUMAB
     Indication: PRODUCT USED FOR UNKNOWN INDICATION
     Dosage: UNK
     Route: 065
     Dates: start: 20130808
  2. FLUOROURACIL. [Concomitant]
     Active Substance: FLUOROURACIL
     Route: 065
  3. ZOLADEX [Concomitant]
     Active Substance: GOSERELIN ACETATE
     Route: 065
  4. LEUPLIN [Concomitant]
     Active Substance: LEUPROLIDE ACETATE
     Route: 065
  5. DENOSUMAB [Suspect]
     Active Substance: DENOSUMAB
     Indication: METASTASES TO BONE
     Dosage: 120 MG, UNK
     Route: 058
     Dates: start: 20130301, end: 20131108
  6. EPIRUBICIN HYDROCHLORIDE. [Suspect]
     Active Substance: EPIRUBICIN HYDROCHLORIDE
     Indication: PRODUCT USED FOR UNKNOWN INDICATION
     Dosage: UNK
     Route: 065
  7. EPIRUBICIN [Concomitant]
     Active Substance: EPIRUBICIN
     Dosage: 75 MG, 5 TIMES DAY
     Route: 065
     Dates: start: 20130325
  8. EXEMESTANE. [Concomitant]
     Active Substance: EXEMESTANE
     Route: 065
  9. FARESTON [Concomitant]
     Active Substance: TOREMIFENE CITRATE
     Route: 065
  10. ETIZOLAM [Concomitant]
     Active Substance: ETIZOLAM
     Dosage: 0.5 MG, QD
     Route: 048
     Dates: start: 20130908, end: 20131108
  11. BROTIZOLAM [Concomitant]
     Active Substance: BROTIZOLAM
     Dosage: 0.25 MG, QD
     Route: 048
     Dates: start: 20130929, end: 20131108
  12. AVASTIN [Suspect]
     Active Substance: BEVACIZUMAB
     Indication: PRODUCT USED FOR UNKNOWN INDICATION
     Dosage: UNK
     Route: 065
     Dates: start: 20130808, end: 20130828
  13. CYCLOPHOSPHAMIDE. [Concomitant]
     Active Substance: CYCLOPHOSPHAMIDE
     Dosage: 600 MG/M2, 5 TIMES DAY
     Route: 065
     Dates: start: 20130325
  14. PACLITAXEL. [Suspect]
     Active Substance: PACLITAXEL
     Indication: PRODUCT USED FOR UNKNOWN INDICATION
     Dosage: UNK
     Route: 065
     Dates: start: 20130808
  15. ARIMIDEX [Concomitant]
     Active Substance: ANASTROZOLE
     Route: 065
  16. CALCICHEW D3 [Concomitant]
     Active Substance: CALCIUM\CHOLECALCIFEROL
     Dosage: 2 DF, QD
     Route: 048
     Dates: start: 20130301, end: 20131108
  17. FEROTYM [Concomitant]
     Active Substance: FERROUS CITRATE\SODIUM
     Dosage: 100 MG, QD
     Route: 048
     Dates: start: 20130412, end: 20130920
  18. DOCETAXEL. [Concomitant]
     Active Substance: DOCETAXEL
     Route: 065

REACTIONS (6)
  - Cardiomyopathy [Not Recovered/Not Resolved]
  - Hyperuricaemia [Not Recovered/Not Resolved]
  - Hypocalcaemia [Unknown]
  - Hypocalcaemia [Recovered/Resolved]
  - Cardiac failure [Not Recovered/Not Resolved]
  - Bone pain [Recovering/Resolving]

NARRATIVE: CASE EVENT DATE: 20130829
